FAERS Safety Report 17484939 (Version 1)
Quarter: 2020Q1

REPORT INFORMATION
  Report Type: Spontaneous
  Country: PT (occurrence: PT)
  Receive Date: 20200302
  Receipt Date: 20200302
  Transmission Date: 20200409
  Serious: Yes (Other)
  Sender: FDA-Public Use
  Company Number: PT-BAYER-2020-031035

PATIENT
  Sex: Male

DRUGS (1)
  1. JAYDESS [Suspect]
     Active Substance: LEVONORGESTREL

REACTIONS (1)
  - Penile haemorrhage [None]
